FAERS Safety Report 21797446 (Version 2)
Quarter: 2023Q1

REPORT INFORMATION
  Report Type: Spontaneous
  Country: US (occurrence: US)
  Receive Date: 20221230
  Receipt Date: 20230221
  Transmission Date: 20230418
  Serious: Yes (Other)
  Sender: FDA-Public Use
  Company Number: US-SANOFI-01423243

PATIENT
  Sex: Female

DRUGS (1)
  1. ZANTAC [Suspect]
     Active Substance: RANITIDINE HYDROCHLORIDE
     Dosage: UNK
     Dates: start: 2017

REACTIONS (2)
  - Gastric cancer [Unknown]
  - Neoplasm malignant [Unknown]
